FAERS Safety Report 4495962-0 (Version None)
Quarter: 2004Q4

REPORT INFORMATION
  Report Type: 
  Country: None (occurrence: None)
  Receive Date: 20040927
  Receipt Date: 20040628
  Transmission Date: 20050328
  Serious: No
  Sender: FDA-Public Use
  Company Number: USA040566879

PATIENT
  Age: 12 Year
  Sex: Male

DRUGS (2)
  1. STRATTERA [Suspect]
     Indication: ATTENTION DEFICIT/HYPERACTIVITY DISORDER
     Dosage: 40 MG DAY
     Dates: start: 20040428
  2. ATENOLOL [Concomitant]

REACTIONS (5)
  - DECREASED APPETITE [None]
  - NAUSEA [None]
  - NECK PAIN [None]
  - SOMNOLENCE [None]
  - VOMITING [None]
